FAERS Safety Report 20212738 (Version 1)
Quarter: 2021Q4

REPORT INFORMATION
  Report Type: Report from Study
  Country: FR (occurrence: FR)
  Receive Date: 20211221
  Receipt Date: 20211221
  Transmission Date: 20220303
  Serious: Yes (Other)
  Sender: FDA-Public Use
  Company Number: FR-JNJFOC-20211052546

PATIENT
  Age: 76 Year
  Sex: Male

DRUGS (2)
  1. DEXAMETHASONE [Suspect]
     Active Substance: DEXAMETHASONE
     Indication: Product used for unknown indication
     Dosage: 20 MILLIGRAM, QW (4 WEEK(S)/CYCLE)
     Route: 065
     Dates: end: 20200724
  2. DARATUMUMAB [Suspect]
     Active Substance: DARATUMUMAB
     Indication: Plasma cell myeloma
     Dosage: 1168 MILLIGRAM, QW (4 WEEK(S)/CYCLE)
     Route: 065
     Dates: end: 20200724

REACTIONS (1)
  - Drug ineffective [Unknown]
